FAERS Safety Report 6095011-7 (Version None)
Quarter: 2009Q1

REPORT INFORMATION
  Report Type: 
  Country: None (occurrence: None)
  Receive Date: 20090227
  Receipt Date: 20090216
  Transmission Date: 20090719
  Serious: Yes (Disabling)
  Sender: FDA-Public Use
  Company Number: BR-ELI_LILLY_AND_COMPANY-BR200902003740

PATIENT
  Sex: Female

DRUGS (6)
  1. FORTEO [Suspect]
     Indication: OSTEOPOROSIS
     Dosage: 20 UG, DAILY (1/D)
     Route: 058
     Dates: start: 20090128
  2. OMEPRAZOLE [Concomitant]
     Indication: DYSPEPSIA
     Dosage: 20 MG, AS NEEDED
  3. CELESTONE SOLUSPAN [Concomitant]
     Indication: HYPERSENSITIVITY
     Dosage: 5 MG, UNK
  4. CELEBRA [Concomitant]
     Indication: PAIN IN EXTREMITY
     Dosage: 200 MG, OTHER
  5. NIFEDIPINE [Concomitant]
     Dosage: 20 MG, UNK
  6. HYDROCHLOROTHIAZIDE [Concomitant]
     Dosage: 25 MG, UNK

REACTIONS (6)
  - HEADACHE [None]
  - MUSCLE SPASMS [None]
  - NAUSEA [None]
  - OEDEMA PERIPHERAL [None]
  - PAIN IN EXTREMITY [None]
  - PYREXIA [None]
